FAERS Safety Report 20809874 (Version 10)
Quarter: 2025Q4

REPORT INFORMATION
  Report Type: Spontaneous
  Country: US (occurrence: US)
  Receive Date: 20220510
  Receipt Date: 20251211
  Transmission Date: 20260118
  Serious: Yes (Other)
  Sender: PFIZER
  Company Number: US-PFIZER INC-202200644714

PATIENT
  Age: 22 Year
  Sex: Male

DRUGS (4)
  1. XYNTHA [Suspect]
     Active Substance: MOROCTOCOG ALFA
     Indication: Haemorrhage
     Dosage: 2000IU (6 DOSES) MINOR
     Route: 042
  2. XYNTHA [Suspect]
     Active Substance: MOROCTOCOG ALFA
     Dosage: 4000IU (6DOSES) MAJOR
     Route: 042
  3. XYNTHA [Suspect]
     Active Substance: MOROCTOCOG ALFA
     Dosage: UNK
  4. XYNTHA [Suspect]
     Active Substance: MOROCTOCOG ALFA
     Dosage: UNK

REACTIONS (3)
  - Haemorrhage [Not Recovered/Not Resolved]
  - Haemarthrosis [Unknown]
  - Pain in extremity [Unknown]
